FAERS Safety Report 7462319-X (Version None)
Quarter: 2011Q2

REPORT INFORMATION
  Report Type: 
  Country: None (occurrence: None)
  Receive Date: 20110506
  Receipt Date: 20110502
  Transmission Date: 20111010
  Serious: Yes (Other)
  Sender: FDA-Public Use
  Company Number: US-ROXANE LABORATORIES, INC.-2011-RO-00607RO

PATIENT
  Sex: Male

DRUGS (5)
  1. LORAZEPAM [Suspect]
     Indication: SLEEP DISORDER THERAPY
     Dosage: 4 MG
     Route: 048
     Dates: start: 20101104
  2. NEURONTIN [Concomitant]
  3. OXYMORPHONE [Concomitant]
  4. METHADONE HCL [Suspect]
     Indication: PAIN
     Dosage: 80 MG
     Route: 048
     Dates: start: 19960101
  5. LORAZEPAM [Suspect]
     Indication: ANXIETY
     Dosage: 1 MG
     Route: 048
     Dates: start: 20101015, end: 20101103

REACTIONS (10)
  - MEMORY IMPAIRMENT [None]
  - SOMNOLENCE [None]
  - FALL [None]
  - MENTAL IMPAIRMENT [None]
  - DRUG INTERACTION [None]
  - ABNORMAL BEHAVIOUR [None]
  - JUDGEMENT IMPAIRED [None]
  - HOSTILITY [None]
  - FOOT FRACTURE [None]
  - DIZZINESS [None]
